FAERS Safety Report 8197419-2 (Version None)
Quarter: 2012Q1

REPORT INFORMATION
  Report Type: 
  Country: None (occurrence: None)
  Receive Date: 20120309
  Receipt Date: 20120229
  Transmission Date: 20120608
  Serious: Yes (Other)
  Sender: FDA-Public Use
  Company Number: ES-JNJFOC-20120302484

PATIENT
  Sex: Male

DRUGS (5)
  1. RISPERDAL [Suspect]
     Route: 048
     Dates: start: 20120105
  2. RISPERDAL [Suspect]
     Route: 048
     Dates: start: 20111221, end: 20120105
  3. DESLORATADINE [Concomitant]
     Indication: ASTHMA
     Route: 065
     Dates: start: 20120101
  4. RISPERDAL [Suspect]
     Route: 048
     Dates: start: 20111220, end: 20111221
  5. RISPERDAL [Suspect]
     Indication: ATTENTION DEFICIT/HYPERACTIVITY DISORDER
     Route: 048
     Dates: start: 20111219, end: 20111220

REACTIONS (3)
  - RESTLESSNESS [None]
  - AGGRESSION [None]
  - NERVOUSNESS [None]
